FAERS Safety Report 9121236 (Version 1)
Quarter: 2013Q1

REPORT INFORMATION
  Report Type: Spontaneous
  Country: US (occurrence: US)
  Receive Date: 20130225
  Receipt Date: 20130225
  Transmission Date: 20140127
  Serious: Yes (Other)
  Sender: FDA-Public Use
  Company Number: US-ROCHE-781841

PATIENT
  Age: 16 Year
  Sex: Male
  Weight: 95.34 kg

DRUGS (5)
  1. ACCUTANE [Suspect]
     Indication: ACNE
     Route: 065
     Dates: start: 200401, end: 200403
  2. ACCUTANE [Suspect]
     Route: 065
  3. AMNESTEEM [Suspect]
     Indication: ACNE
     Route: 065
  4. AMNESTEEM [Suspect]
     Route: 065
     Dates: start: 200403, end: 200404
  5. AMNESTEEM [Suspect]
     Route: 065

REACTIONS (8)
  - Crohn^s disease [Unknown]
  - Inflammatory bowel disease [Unknown]
  - Stress [Unknown]
  - Anal fissure [Unknown]
  - Irritable bowel syndrome [Unknown]
  - Dry skin [Unknown]
  - Chapped lips [Unknown]
  - Epistaxis [Unknown]
